FAERS Safety Report 15721631 (Version 1)
Quarter: 2018Q4

REPORT INFORMATION
  Report Type: Report from Study
  Country: US (occurrence: US)
  Receive Date: 20181214
  Receipt Date: 20181214
  Transmission Date: 20190205
  Serious: Yes (Death, Hospitalization)
  Sender: FDA-Public Use
  Company Number: US-ROCHE-2184797

PATIENT
  Age: 74 Year
  Sex: Female

DRUGS (13)
  1. BACLOFEN. [Concomitant]
     Active Substance: BACLOFEN
  2. CRANBERRY. [Concomitant]
     Active Substance: CRANBERRY
  3. SYNTHROID [Concomitant]
     Active Substance: LEVOTHYROXINE SODIUM
  4. METOPROLOL. [Concomitant]
     Active Substance: METOPROLOL
  5. AMANTADINE. [Concomitant]
     Active Substance: AMANTADINE HYDROCHLORIDE
  6. METHENAMINE [Concomitant]
     Active Substance: METHENAMINE
  7. IPRATROPIUM [Concomitant]
     Active Substance: IPRATROPIUM
  8. AMLODIPINE [Concomitant]
     Active Substance: AMLODIPINE BESYLATE
  9. OCREVUS [Suspect]
     Active Substance: OCRELIZUMAB
     Indication: RELAPSING-REMITTING MULTIPLE SCLEROSIS
     Dosage: DAY 1 300MG AND DAY 15 300 MG AND THEN 300 MG 2 VIALS PER 6 MONTHS?INFUSION: 03/AUG/2017, 03/JAN/201
     Route: 065
     Dates: start: 20170720
  10. GABAPENTIN. [Concomitant]
     Active Substance: GABAPENTIN
  11. DIAZEPAM. [Concomitant]
     Active Substance: DIAZEPAM
     Route: 065
  12. LEXAPRO [Concomitant]
     Active Substance: ESCITALOPRAM OXALATE
  13. LOSARTAN. [Concomitant]
     Active Substance: LOSARTAN

REACTIONS (10)
  - Atrial fibrillation [Unknown]
  - Bradycardia [Unknown]
  - Hyponatraemia [Unknown]
  - Burns second degree [Unknown]
  - Acute kidney injury [Unknown]
  - Anaemia [Unknown]
  - Dyspnoea [Unknown]
  - Dehydration [Unknown]
  - Pneumonia [Unknown]
  - Death [Fatal]

NARRATIVE: CASE EVENT DATE: 20180810
